FAERS Safety Report 23353596 (Version 1)
Quarter: 2024Q1

REPORT INFORMATION
  Report Type: Other
  Country: US (occurrence: None)
  Receive Date: 20240101
  Receipt Date: 20240101
  Transmission Date: 20240410
  Serious: No
  Sender: FDA-Public Use
  Company Number: US-ROCHE-3482946

PATIENT
  Age: 31 Year
  Sex: Male
  Weight: 67.828 kg

DRUGS (4)
  1. OCREVUS [Suspect]
     Active Substance: OCRELIZUMAB
     Indication: Multiple sclerosis
     Dosage: 300MG IV INITIAL DOSE, FOLLOWED BY 2 WEEKS LATER BY SECOND 300MG IV DOSE, SUBSEQUENT TO FIRST 2 DOSE
     Route: 042
  2. TYLENOL [Concomitant]
     Active Substance: ACETAMINOPHEN
  3. METHYLPREDNISOLONE [Concomitant]
     Active Substance: METHYLPREDNISOLONE
  4. DIPHENHYDRAMINE [Concomitant]
     Active Substance: DIPHENHYDRAMINE

REACTIONS (12)
  - Seizure [Unknown]
  - Hallucination [Unknown]
  - Ataxia [Unknown]
  - Hypersomnia [Unknown]
  - Demyelination [Unknown]
  - Paraesthesia [Unknown]
  - Epilepsy [Unknown]
  - Optic neuritis [Unknown]
  - Memory impairment [Unknown]
  - Brain fog [Unknown]
  - Neck pain [Unknown]
  - Back pain [Unknown]
